FAERS Safety Report 6758602-3 (Version None)
Quarter: 2010Q2

REPORT INFORMATION
  Report Type: 
  Country: None (occurrence: None)
  Receive Date: 20100607
  Receipt Date: 20100524
  Transmission Date: 20101027
  Serious: Yes (Death, Other)
  Sender: FDA-Public Use
  Company Number: GB-BAUSCH-2010BL002961

PATIENT

DRUGS (1)
  1. PREDNISOLONE [Suspect]
     Indication: MIXED CONNECTIVE TISSUE DISEASE
     Route: 064
     Dates: start: 20060101

REACTIONS (4)
  - ATRIOVENTRICULAR BLOCK COMPLETE [None]
  - ENDOCARDIAL FIBROELASTOSIS [None]
  - MATERNAL DRUGS AFFECTING FOETUS [None]
  - PERICARDIAL EFFUSION [None]
